FAERS Safety Report 9037769 (Version 1)
Quarter: 2013Q1

REPORT INFORMATION
  Report Type: Spontaneous
  Country: US (occurrence: US)
  Receive Date: 20130129
  Receipt Date: 20130129
  Transmission Date: 20140127
  Serious: Yes (Other)
  Sender: FDA-Public Use
  Company Number: US-CELGENEUS-163-20785-13012737

PATIENT
  Sex: 0

DRUGS (7)
  1. THALOMID [Suspect]
     Indication: PLASMA CELL MYELOMA
     Dosage: 200 MILLIGRAM
     Route: 048
  2. THALOMID [Suspect]
     Dosage: 50MG DECREMENTS TO MIN 100MG
     Route: 048
  3. PREDNISONE [Suspect]
     Indication: PLASMA CELL MYELOMA
     Dosage: 50 MILLIGRAM
     Route: 065
  4. PREDNISONE [Suspect]
     Dosage: 25 MILLIGRAM
     Route: 065
  5. BISPHOSPHONATES [Concomitant]
     Indication: PRODUCT USED FOR UNKNOWN INDICATION
     Route: 065
  6. HISTAMINE-2 BLOCKERS [Concomitant]
     Indication: PRODUCT USED FOR UNKNOWN INDICATION
     Route: 065
  7. LAXATIVES [Concomitant]
     Indication: PRODUCT USED FOR UNKNOWN INDICATION
     Route: 065

REACTIONS (19)
  - Cushingoid [Unknown]
  - Amnesia [Unknown]
  - Depressed level of consciousness [Unknown]
  - Contusion [Unknown]
  - Cataract [Unknown]
  - Hyperglycaemia [Unknown]
  - Infection [Unknown]
  - Hypertension [Unknown]
  - Vision blurred [Unknown]
  - Anxiety [Unknown]
  - Oedema [Unknown]
  - Fatigue [Unknown]
  - Neutropenia [Unknown]
  - Peripheral sensory neuropathy [Unknown]
  - Embolism [Unknown]
  - Tremor [Unknown]
  - Dry mouth [Unknown]
  - Dyspepsia [Unknown]
  - Dyspnoea [Unknown]
